FAERS Safety Report 24799386 (Version 1)
Quarter: 2025Q1

REPORT INFORMATION
  Report Type: Spontaneous
  Country: GB (occurrence: GB)
  Receive Date: 20250102
  Receipt Date: 20250102
  Transmission Date: 20250409
  Serious: Yes (Other)
  Sender: ACCORD
  Company Number: None

PATIENT
  Age: 67 Year
  Sex: Female
  Weight: 47 kg

DRUGS (3)
  1. AMLODIPINE [Suspect]
     Active Substance: AMLODIPINE BESYLATE
     Indication: Product used for unknown indication
  2. NYSTATIN [Concomitant]
     Active Substance: NYSTATIN
     Dosage: 1ML TO BE DROPPED INTO THE MOUTH FOUR TIMES A DAY.
     Dates: start: 20241212
  3. NITROFURANTOIN [Concomitant]
     Active Substance: NITROFURANTOIN
     Dosage: ONE TO BE TAKEN TWICE A DAY
     Dates: start: 20241213

REACTIONS (1)
  - Joint swelling [Unknown]
